FAERS Safety Report 8008664-0 (Version None)
Quarter: 2011Q4

REPORT INFORMATION
  Report Type: 
  Country: None (occurrence: None)
  Receive Date: 20111227
  Receipt Date: 20111219
  Transmission Date: 20120403
  Serious: Yes (Hospitalization)
  Sender: FDA-Public Use
  Company Number: JP-MERCK-1111USA02790

PATIENT
  Age: 62 Year
  Sex: Female
  Weight: 50 kg

DRUGS (9)
  1. FOSAMAX [Suspect]
     Route: 048
     Dates: start: 20050101
  2. RHEUMATREX [Concomitant]
     Route: 048
  3. PREDNISOLONE [Concomitant]
     Dosage: MORNING
     Route: 048
  4. LIPITOR [Concomitant]
     Route: 048
  5. ROCALTROL [Concomitant]
     Dosage: MORNING
     Route: 048
  6. FOLIC ACID [Concomitant]
     Route: 048
  7. AMLODIPINE BESYLATE [Concomitant]
     Route: 048
  8. ETODOLAC [Concomitant]
     Route: 048
  9. ZANTAC [Concomitant]
     Route: 048

REACTIONS (2)
  - LOW TURNOVER OSTEOPATHY [None]
  - FEMUR FRACTURE [None]
